FAERS Safety Report 12551947 (Version 1)
Quarter: 2016Q3

REPORT INFORMATION
  Report Type: Spontaneous
  Country: GB (occurrence: GB)
  Receive Date: 20160713
  Receipt Date: 20160713
  Transmission Date: 20161109
  Serious: Yes (Other)
  Sender: FDA-Public Use
  Company Number: GB-AUROBINDO-AUR-APL-2016-08615

PATIENT
  Age: 14 Year
  Sex: Female

DRUGS (6)
  1. SEROXAT [Suspect]
     Active Substance: PAROXETINE HYDROCHLORIDE
     Indication: DEPRESSION
     Dosage: UNK
     Route: 065
     Dates: start: 19980513, end: 200409
  2. EFFEXOR [Concomitant]
     Active Substance: VENLAFAXINE HYDROCHLORIDE
     Indication: PRODUCT USED FOR UNKNOWN INDICATION
     Route: 065
     Dates: start: 20041116
  3. PAROXETINE TABLET [Suspect]
     Active Substance: PAROXETINE
     Indication: PRODUCT USED FOR UNKNOWN INDICATION
     Dosage: 20 MG, DAILY
     Route: 048
  4. CIPRAMIL                           /00582602/ [Concomitant]
     Active Substance: CITALOPRAM HYDROBROMIDE
     Indication: PRODUCT USED FOR UNKNOWN INDICATION
     Dosage: UNK
     Route: 065
     Dates: start: 20041021
  5. PAXIL [Suspect]
     Active Substance: PAROXETINE HYDROCHLORIDE
     Indication: DEPRESSION
     Dosage: UNK
     Route: 005
     Dates: start: 19980513, end: 200409
  6. TRIMIPRAMINE [Concomitant]
     Active Substance: TRIMIPRAMINE
     Indication: PRODUCT USED FOR UNKNOWN INDICATION
     Dosage: UNK
     Route: 065
     Dates: start: 19981030

REACTIONS (31)
  - Aggression [Unknown]
  - Pyrexia [Unknown]
  - Memory impairment [Unknown]
  - Dizziness [Unknown]
  - Vertigo [Unknown]
  - Lethargy [Unknown]
  - Somnolence [Unknown]
  - Tearfulness [Unknown]
  - Headache [Unknown]
  - Hyperhidrosis [Unknown]
  - Rash [Unknown]
  - Nausea [Unknown]
  - Suicidal behaviour [Unknown]
  - Obsessive-compulsive disorder [Unknown]
  - Disturbance in attention [Unknown]
  - Mood swings [Unknown]
  - Agitation [Unknown]
  - Tremor [Unknown]
  - Fatigue [Unknown]
  - Feeling abnormal [Unknown]
  - Drug withdrawal syndrome [Unknown]
  - Seizure [Unknown]
  - Influenza [Unknown]
  - Decreased appetite [Unknown]
  - Vomiting [Unknown]
  - Depression [Unknown]
  - Anxiety [Unknown]
  - Insomnia [Unknown]
  - Paraesthesia [Unknown]
  - Scar [Unknown]
  - Photophobia [Unknown]

NARRATIVE: CASE EVENT DATE: 19990108
